FAERS Safety Report 21504958 (Version 2)
Quarter: 2022Q4

REPORT INFORMATION
  Report Type: Report from Study
  Country: US (occurrence: US)
  Receive Date: 20221025
  Receipt Date: 20221111
  Transmission Date: 20230113
  Serious: Yes (Hospitalization)
  Sender: FDA-Public Use
  Company Number: US-JNJFOC-20221034903

PATIENT
  Age: 79 Year
  Sex: Male

DRUGS (3)
  1. APALUTAMIDE [Suspect]
     Active Substance: APALUTAMIDE
     Indication: Prostate cancer
     Route: 048
     Dates: start: 202209
  2. APALUTAMIDE [Suspect]
     Active Substance: APALUTAMIDE
     Route: 048
  3. APALUTAMIDE [Suspect]
     Active Substance: APALUTAMIDE
     Route: 048

REACTIONS (4)
  - Renal failure [Unknown]
  - Vomiting [Unknown]
  - Somnolence [Unknown]
  - Off label use [Unknown]
